FAERS Safety Report 19204194 (Version 2)
Quarter: 2021Q2

REPORT INFORMATION
  Report Type: Other
  Country: CA (occurrence: CA)
  Receive Date: 20210503
  Receipt Date: 20210614
  Transmission Date: 20210717
  Serious: Yes (Other)
  Sender: FDA-Public Use
  Company Number: CA-CELLTRION INC.-2021CA005674

PATIENT

DRUGS (10)
  1. GLICLAZIDE [Concomitant]
     Active Substance: GLICLAZIDE
  2. BENADRYL [Concomitant]
     Active Substance: DIPHENHYDRAMINE HYDROCHLORIDE
     Dosage: 50 MILLIGRAM
     Route: 048
  3. LEVOTHYROXINE. [Concomitant]
     Active Substance: LEVOTHYROXINE
  4. LISINOPRIL. [Concomitant]
     Active Substance: LISINOPRIL
  5. METHOTREXATE. [Concomitant]
     Active Substance: METHOTREXATE
     Route: 037
  6. TYLENOL [Concomitant]
     Active Substance: ACETAMINOPHEN
     Dosage: 650 MILLIGRAM
     Route: 048
  7. IRON [Concomitant]
     Active Substance: IRON
  8. OMEGA 3 [DOCOSAHEXAENOIC ACID;EICOSAPENTAENOIC ACID] [Concomitant]
     Active Substance: DOCONEXENT\ICOSAPENT
  9. RITUXIMAB (UNKNOWN) [Suspect]
     Active Substance: RITUXIMAB
     Indication: SCLERITIS
     Dosage: 1000 MG, 1 EVERY 2 MONTHS
     Route: 041
  10. HYDROXYCHLOROQUINE SULFATE. [Concomitant]
     Active Substance: HYDROXYCHLOROQUINE SULFATE

REACTIONS (4)
  - Abdominal pain [Recovered/Resolved]
  - Cyst [Recovered/Resolved]
  - Off label use [Unknown]
  - Food poisoning [Recovered/Resolved]
